FAERS Safety Report 21591729 (Version 1)
Quarter: 2022Q4

REPORT INFORMATION
  Report Type: Spontaneous
  Country: CN (occurrence: CN)
  Receive Date: 20221114
  Receipt Date: 20221114
  Transmission Date: 20230113
  Serious: Yes (Other)
  Sender: FDA-Public Use
  Company Number: CN-002147023-NVSC2022CN254164

PATIENT
  Age: 49 Year
  Sex: Male

DRUGS (7)
  1. MYFORTIC [Suspect]
     Active Substance: MYCOPHENOLATE SODIUM
     Indication: Renal transplant
     Dosage: 1440 MG
     Route: 048
     Dates: start: 20191121, end: 202103
  2. CYCLOSPORINE [Suspect]
     Active Substance: CYCLOSPORINE
     Indication: Product used for unknown indication
     Dosage: UNK (90-110 NG/ML) (PRE-DOSE CONCENTRATION)
     Route: 065
     Dates: start: 202012
  3. CYCLOSPORINE [Suspect]
     Active Substance: CYCLOSPORINE
     Dosage: UNK (70-90 NG/ML) (PRE-DOSE CONCENTRATION)
     Route: 065
  4. CYCLOSPORINE [Suspect]
     Active Substance: CYCLOSPORINE
     Dosage: UNK (100-120 NG/ML) (PRE-DOSE CONCENTRATION)
     Route: 065
     Dates: start: 202112
  5. CYCLOSPORINE [Suspect]
     Active Substance: CYCLOSPORINE
     Dosage: UNK (100-120 NG/ML) (PRE-DOSE CONCENTRATION)
     Route: 065
     Dates: start: 202203
  6. TACROLIMUS [Suspect]
     Active Substance: TACROLIMUS
     Indication: Renal transplant
     Dosage: UNK
     Route: 065
  7. MEDROL [Suspect]
     Active Substance: METHYLPREDNISOLONE
     Indication: Renal transplant
     Dosage: UNK
     Route: 065

REACTIONS (6)
  - Renal hydrocele [Recovered/Resolved]
  - Renal impairment [Unknown]
  - Transplant rejection [Unknown]
  - Glomerulosclerosis [Unknown]
  - Polyomavirus-associated nephropathy [Unknown]
  - Kidney transplant rejection [Unknown]

NARRATIVE: CASE EVENT DATE: 20210301
